FAERS Safety Report 11923226 (Version 1)
Quarter: 2016Q1

REPORT INFORMATION
  Report Type: Spontaneous
  Country: GB (occurrence: GB)
  Receive Date: 20160118
  Receipt Date: 20160118
  Transmission Date: 20160526
  Serious: Yes (Congenital Anomaly, Other)
  Sender: FDA-Public Use
  Company Number: GB-ALEMBIC PHARMACUETICALS LIMITED-2016SCAL000011

PATIENT

DRUGS (1)
  1. FLUOXETINE HYDROCHLORIDE. [Suspect]
     Active Substance: FLUOXETINE HYDROCHLORIDE
     Indication: PRODUCT USED FOR UNKNOWN INDICATION
     Dosage: UNK
     Route: 064

REACTIONS (23)
  - Renal dysplasia [Unknown]
  - Anencephaly [Unknown]
  - Limb reduction defect [Unknown]
  - Dysmorphism [Unknown]
  - Neck deformity [Unknown]
  - Ear malformation [Unknown]
  - Anal atresia [Unknown]
  - Hypospadias [Unknown]
  - Craniosynostosis [Unknown]
  - Atrial septal defect [Unknown]
  - Fallot^s tetralogy [Unknown]
  - Anorectal stenosis [Unknown]
  - Talipes [Unknown]
  - Foetal exposure during pregnancy [Unknown]
  - Hypoplastic left heart syndrome [Unknown]
  - Congenital eye disorder [Unknown]
  - Gastrointestinal malformation [Unknown]
  - Cardiac septal defect [Unknown]
  - Gastroschisis [Unknown]
  - Ventricular septal defect [Unknown]
  - Atrioventricular septal defect [Unknown]
  - Pulmonary valve stenosis congenital [Unknown]
  - Respiratory tract malformation [Unknown]
